FAERS Safety Report 8192777-7 (Version None)
Quarter: 2012Q1

REPORT INFORMATION
  Report Type: 
  Country: None (occurrence: None)
  Receive Date: 20120308
  Receipt Date: 20120302
  Transmission Date: 20120608
  Serious: No
  Sender: FDA-Public Use
  Company Number: US-PFIZER INC-2012058287

PATIENT

DRUGS (1)
  1. TIKOSYN [Suspect]
     Dosage: 250 UG, 2X/DAY
     Dates: start: 20111121

REACTIONS (5)
  - HEART RATE INCREASED [None]
  - DIZZINESS [None]
  - HEADACHE [None]
  - SENSATION OF BLOOD FLOW [None]
  - FEELING ABNORMAL [None]
